FAERS Safety Report 6661652-9 (Version None)
Quarter: 2010Q1

REPORT INFORMATION
  Report Type: 
  Country: None (occurrence: None)
  Receive Date: 20100331
  Receipt Date: 20090324
  Transmission Date: 20100710
  Serious: No
  Sender: FDA-Public Use
  Company Number: US-BRISTOL-MYERS SQUIBB COMPANY-14558530

PATIENT
  Age: 54 Year
  Sex: Male
  Weight: 70 kg

DRUGS (7)
  1. ERBITUX [Suspect]
  2. KEPPRA [Concomitant]
  3. TARCEVA [Concomitant]
  4. M.V.I. [Concomitant]
  5. NORVASC [Concomitant]
  6. QUINARETIC [Concomitant]
  7. AVASTIN [Concomitant]

REACTIONS (3)
  - DIARRHOEA [None]
  - INGROWING NAIL [None]
  - WHITE BLOOD CELL COUNT DECREASED [None]
